FAERS Safety Report 7876632-5 (Version None)
Quarter: 2011Q4

REPORT INFORMATION
  Report Type: 
  Country: None (occurrence: None)
  Receive Date: 20111031
  Receipt Date: 20100513
  Transmission Date: 20120403
  Serious: No
  Sender: FDA-Public Use
  Company Number: US-BAYER-201022650NA

PATIENT
  Sex: Male

DRUGS (6)
  1. AVELOX [Suspect]
     Indication: SINUSITIS
     Dosage: 400 MG, UNK
     Route: 048
     Dates: start: 20100506
  2. ASPIRIN [Concomitant]
     Dosage: 325 MG, QD
  3. ZOCOR [Concomitant]
  4. WELLBUTRIN [Concomitant]
  5. ATENOLOL [Concomitant]
     Dosage: 100 MG, UNK
  6. LOTREL [Concomitant]

REACTIONS (5)
  - DISORIENTATION [None]
  - DIZZINESS [None]
  - SOMNOLENCE [None]
  - ANXIETY [None]
  - ARTHRALGIA [None]
